FAERS Safety Report 8162580-2 (Version None)
Quarter: 2012Q1

REPORT INFORMATION
  Report Type: 
  Country: None (occurrence: None)
  Receive Date: 20120224
  Receipt Date: 20120220
  Transmission Date: 20120608
  Serious: Yes (Other)
  Sender: FDA-Public Use
  Company Number: US-AMGEN-USASP2011055485

PATIENT
  Age: 59 Year
  Sex: Female
  Weight: 67.574 kg

DRUGS (2)
  1. PROLIA [Suspect]
     Indication: OSTEOPOROSIS POSTMENOPAUSAL
     Dosage: 60 MG, Q6MO
     Dates: start: 20111004
  2. ESTROGEN [Concomitant]
     Dosage: UNK

REACTIONS (8)
  - PARAESTHESIA ORAL [None]
  - PARAESTHESIA [None]
  - BLOOD MAGNESIUM INCREASED [None]
  - HYPOAESTHESIA ORAL [None]
  - HYPOAESTHESIA [None]
  - BLOOD UREA INCREASED [None]
  - ORAL PRURITUS [None]
  - PAIN IN EXTREMITY [None]
